FAERS Safety Report 9832586 (Version 1)
Quarter: 2014Q1

REPORT INFORMATION
  Report Type: Spontaneous
  Country: PL (occurrence: PL)
  Receive Date: 20140121
  Receipt Date: 20140121
  Transmission Date: 20141002
  Serious: Yes (Hospitalization)
  Sender: FDA-Public Use
  Company Number: PL-TEVA-456666ISR

PATIENT
  Age: 85 Year
  Sex: Female

DRUGS (2)
  1. CARVEDILOL [Suspect]
     Route: 065
  2. SOTALOL [Interacting]
     Dosage: 120 MILLIGRAM DAILY; 120 MG/D
     Route: 065

REACTIONS (6)
  - Electrocardiogram QT prolonged [Unknown]
  - Heart alternation [Unknown]
  - Electrocardiogram ST segment [Unknown]
  - Torsade de pointes [Unknown]
  - Drug administration error [Unknown]
  - Drug interaction [Unknown]
